FAERS Safety Report 10517539 (Version 4)
Quarter: 2017Q4

REPORT INFORMATION
  Report Type: Report from Study
  Country: JP (occurrence: JP)
  Receive Date: 20141014
  Receipt Date: 20171223
  Transmission Date: 20180320
  Serious: Yes (Hospitalization, Other)
  Sender: FDA-Public Use
  Company Number: PHHY2009JP21332

PATIENT
  Age: 68 Year
  Sex: Male

DRUGS (28)
  1. TASIGNA [Suspect]
     Active Substance: NILOTINIB
     Indication: CHRONIC MYELOID LEUKAEMIA
     Dosage: 200 MG, BID
     Route: 048
     Dates: start: 20090515, end: 20090518
  2. TASIGNA [Suspect]
     Active Substance: NILOTINIB
     Dosage: 200 MG, QD
     Route: 048
     Dates: start: 20090730, end: 20090930
  3. TASIGNA [Suspect]
     Active Substance: NILOTINIB
     Dosage: 200 MG, QW5
     Route: 048
     Dates: start: 20100204, end: 20100314
  4. PREDONINE [Concomitant]
     Active Substance: PREDNISOLONE
     Dosage: 10 MG, UNK
     Route: 065
     Dates: start: 20090903
  5. PREDONINE [Concomitant]
     Active Substance: PREDNISOLONE
     Dosage: 2 MG, UNK
     Route: 065
     Dates: start: 20091214
  6. TASIGNA [Suspect]
     Active Substance: NILOTINIB
     Dosage: 200 MG, QW
     Route: 048
     Dates: start: 20091001, end: 20091014
  7. TASIGNA [Suspect]
     Active Substance: NILOTINIB
     Dosage: 200 MG, QW4
     Route: 048
     Dates: start: 20100315, end: 20100606
  8. TASIGNA [Suspect]
     Active Substance: NILOTINIB
     Dosage: 200 MG, UNK
     Route: 048
     Dates: start: 20100701
  9. PREDONINE [Concomitant]
     Active Substance: PREDNISOLONE
     Dosage: 5 MG, UNK
     Route: 065
     Dates: start: 20090617
  10. PREDONINE [Concomitant]
     Active Substance: PREDNISOLONE
     Dosage: 1 MG, UNK
     Route: 065
     Dates: start: 20100216
  11. TASIGNA [Suspect]
     Active Substance: NILOTINIB
     Dosage: 200 MG, QW5
     Route: 048
     Dates: start: 20091214, end: 20091228
  12. TASIGNA [Suspect]
     Active Substance: NILOTINIB
     Dosage: 200 MG, QW5
     Route: 048
     Dates: start: 20100607, end: 201006
  13. PREDONINE [Concomitant]
     Active Substance: PREDNISOLONE
     Dosage: 15 MG, UNK
     Route: 065
     Dates: start: 20090730
  14. TASIGNA [Suspect]
     Active Substance: NILOTINIB
     Dosage: 400 MG, BID
     Route: 048
     Dates: start: 20090519, end: 20090523
  15. TASIGNA [Suspect]
     Active Substance: NILOTINIB
     Dosage: 200 MG, QD
     Route: 048
     Dates: start: 20090602, end: 20090630
  16. TASIGNA [Suspect]
     Active Substance: NILOTINIB
     Dosage: 200 MG, QW3
     Route: 048
     Dates: start: 20091029, end: 20091109
  17. PREDONINE [Concomitant]
     Active Substance: PREDNISOLONE
     Dosage: 7 MG, UNK
     Route: 065
     Dates: start: 20090917
  18. PREDONINE [Concomitant]
     Active Substance: PREDNISOLONE
     Dosage: 1 MG, UNK
     Dates: start: 20091229
  19. PREDONINE [Concomitant]
     Active Substance: PREDNISOLONE
     Dosage: UNK
  20. TASIGNA [Suspect]
     Active Substance: NILOTINIB
     Dosage: 200 MG, QW5
     Route: 048
     Dates: start: 20091110, end: 20091127
  21. PREDONINE [Concomitant]
     Active Substance: PREDNISOLONE
     Indication: PRODUCT USED FOR UNKNOWN INDICATION
     Dosage: 10 MG, UNK
     Route: 065
     Dates: start: 20090527
  22. PREDONINE [Concomitant]
     Active Substance: PREDNISOLONE
     Dosage: 7 MG, UNK
     Route: 065
     Dates: start: 20090610
  23. PREDONINE [Concomitant]
     Active Substance: PREDNISOLONE
     Dosage: 10 MG, UNK
     Route: 065
     Dates: start: 20090709
  24. PREDONINE [Concomitant]
     Active Substance: PREDNISOLONE
     Dosage: 6 MG, UNK
     Route: 065
     Dates: start: 20091001
  25. TASIGNA [Suspect]
     Active Substance: NILOTINIB
     Dosage: 200 MG, QD
     Route: 048
     Dates: start: 20091128, end: 20091213
  26. TASIGNA [Suspect]
     Active Substance: NILOTINIB
     Dosage: 200 MG, QW3
     Route: 048
     Dates: start: 20091229
  27. PREDONINE [Concomitant]
     Active Substance: PREDNISOLONE
     Dosage: 12 MG, UNK
     Route: 065
     Dates: start: 20090820
  28. PREDONINE [Concomitant]
     Active Substance: PREDNISOLONE
     Dosage: 3 MG, UNK
     Route: 065
     Dates: start: 20091015

REACTIONS (7)
  - Pleural effusion [Recovering/Resolving]
  - Interstitial lung disease [Recovering/Resolving]
  - C-reactive protein increased [Recovered/Resolved]
  - Platelet count decreased [Recovering/Resolving]
  - Pyrexia [Recovered/Resolved]
  - Hypoxia [Unknown]
  - Platelet count decreased [Recovered/Resolved]

NARRATIVE: CASE EVENT DATE: 20090523
